FAERS Safety Report 6006851-4 (Version None)
Quarter: 2008Q4

REPORT INFORMATION
  Report Type: 
  Country: None (occurrence: None)
  Receive Date: 20081217
  Receipt Date: 20071105
  Transmission Date: 20090506
  Serious: No
  Sender: FDA-Public Use
  Company Number: US-ASTRAZENECA-2007UW25752

PATIENT
  Age: 60 Year
  Sex: Female
  Weight: 63.5 kg

DRUGS (4)
  1. CRESTOR [Suspect]
     Route: 048
     Dates: start: 20070901
  2. MULTI-VITAMIN [Concomitant]
  3. ASPIRIN [Concomitant]
  4. LOVAZA [Concomitant]

REACTIONS (1)
  - ORAL HERPES [None]
